FAERS Safety Report 9391811 (Version 3)
Quarter: 2013Q3

REPORT INFORMATION
  Report Type: Spontaneous
  Country: DE (occurrence: DE)
  Receive Date: 20130709
  Receipt Date: 20130820
  Transmission Date: 20140515
  Serious: Yes (Other)
  Sender: FDA-Public Use
  Company Number: DE-EISAI INC-E2007-01227-SPO-DE

PATIENT
  Sex: Male

DRUGS (5)
  1. FYCOMPA (PERAMPANEL) [Suspect]
     Indication: EPILEPSY
     Route: 048
     Dates: start: 201301, end: 2013
  2. FYCOMPA (PERAMPANEL) [Suspect]
     Dosage: TAPERED OFF
     Route: 048
     Dates: start: 2013, end: 20130707
  3. ZEBINIX [Concomitant]
     Indication: EPILEPSY
     Dosage: 1600 MG/DAY
     Route: 048
  4. LEVETIRACETAM [Concomitant]
     Indication: EPILEPSY
     Dosage: 3000 MG/DAY
     Route: 048
  5. METOPROLOL [Concomitant]
     Indication: PRODUCT USED FOR UNKNOWN INDICATION
     Dosage: UNKNOWN
     Route: 048

REACTIONS (2)
  - Gamma-glutamyltransferase increased [Recovering/Resolving]
  - Drug ineffective [Not Recovered/Not Resolved]
